FAERS Safety Report 9665960 (Version 2)
Quarter: 2013Q4

REPORT INFORMATION
  Report Type: Spontaneous
  Country: DK (occurrence: FR)
  Receive Date: 20131104
  Receipt Date: 20131104
  Transmission Date: 20140711
  Serious: Yes (Death, Hospitalization)
  Sender: FDA-Public Use
  Company Number: FR-FRI-1000048785

PATIENT
  Age: 41 Year
  Sex: Female

DRUGS (54)
  1. ESCITALOPRAM [Suspect]
     Route: 048
     Dates: start: 20130721
  2. FORTUM [Suspect]
     Dosage: 4 DF
     Route: 042
     Dates: start: 20130621, end: 20130809
  3. FLAGYL [Suspect]
     Dosage: 3 DF
     Route: 048
     Dates: start: 20130712, end: 20130812
  4. GENTAMICINE PANPHARMA [Suspect]
     Dosage: 1 DF
     Route: 042
     Dates: start: 20130809, end: 20130811
  5. NOXAFIL [Suspect]
     Dosage: 3 DF
     Dates: start: 20130619, end: 20130708
  6. CANCIDAS [Suspect]
     Route: 011
     Dates: start: 20130709, end: 20130709
  7. AMBISOME [Suspect]
     Dosage: 1 DF
     Route: 042
     Dates: start: 20130709, end: 20130811
  8. BACTRIM [Suspect]
     Dosage: 0.8571 DF
     Route: 042
     Dates: start: 20130724, end: 20130809
  9. ACIDE FOLINIQUE [Suspect]
     Dosage: 21.4286 MG
     Route: 042
     Dates: start: 20130724, end: 20130809
  10. ZELITREX [Suspect]
     Dosage: 2 DF
     Route: 042
     Dates: start: 20130709, end: 20130812
  11. CYMEVAN [Suspect]
     Dosage: 700 MG
     Route: 042
     Dates: start: 20130726, end: 20130812
  12. FOSCAVIR [Suspect]
     Dosage: 12 GRAM/500 ML DAILY
     Route: 042
     Dates: start: 20130808
  13. CLAIRYG [Suspect]
     Route: 042
  14. GRANOCYTE [Suspect]
     Route: 042
     Dates: start: 20130807
  15. HEPARIN SODIQUE [Suspect]
     Dosage: 7000 IU
     Route: 042
     Dates: start: 20130605
  16. INEXIUM [Suspect]
     Dosage: 1 DF
     Route: 042
     Dates: start: 20130709, end: 20130812
  17. SPASFON [Suspect]
     Dosage: 6 DF
     Route: 042
     Dates: start: 20130619
  18. DELURSAN [Suspect]
     Dosage: 6 DF
     Route: 048
     Dates: start: 20130605, end: 20130708
  19. DEFIBROTIDE [Suspect]
     Dosage: 25 MG/KG DAILY
     Route: 042
     Dates: start: 20130605, end: 20130812
  20. LARGACTIL [Suspect]
     Dosage: 1 DF
     Route: 042
     Dates: start: 20130619, end: 20130709
  21. TRANXENE [Suspect]
     Route: 048
     Dates: start: 20130622, end: 20130709
  22. OXYNORM [Suspect]
     Route: 042
     Dates: start: 20130619
  23. EXACYL [Suspect]
     Dosage: 3 DF
     Dates: start: 20130727, end: 20130812
  24. PERFALGAN [Suspect]
     Dosage: 3 DF
     Dates: start: 20130710, end: 20130812
  25. SOLUMEDROL [Suspect]
     Dosage: 1 DF
     Route: 042
     Dates: start: 20130709
  26. DROLEPTAN [Suspect]
     Dosage: 4 DF
     Dates: start: 20130712, end: 20130717
  27. ULTIVA [Suspect]
     Dosage: 24 DF
     Route: 005
     Dates: start: 20130714, end: 20130717
  28. ATARAX [Suspect]
     Dosage: 0.5 DF
     Route: 048
     Dates: start: 20130714
  29. LASILIX [Suspect]
     Dosage: 2 DF
     Route: 042
     Dates: start: 20130716, end: 20130809
  30. CERIS [Suspect]
     Dosage: 2 DF
     Route: 048
     Dates: start: 20130807
  31. NOCTAMIDE [Suspect]
     Dosage: 1 DF
     Route: 048
     Dates: start: 20130808
  32. GENTAMICINE [Concomitant]
     Indication: GASTROINTESTINAL INFECTION
     Dosage: 6 DF
     Route: 048
     Dates: start: 20130605, end: 20130708
  33. COLISTINE [Concomitant]
     Indication: GASTROINTESTINAL INFECTION
     Dosage: 6 DF
     Route: 048
     Dates: start: 20130605, end: 20130708
  34. VANCOMYCINE MYLAN [Concomitant]
     Dosage: 1 DF
     Dates: start: 20130605, end: 20130709
  35. CIFLOX [Concomitant]
     Dosage: 2 DF
     Dates: start: 20130621, end: 20130712
  36. TARGOCID [Concomitant]
     Dosage: 2 DF
     Dates: start: 20130710
  37. MYCOSTATINE [Concomitant]
     Dosage: 2 BOTTLES DAILY
     Dates: start: 20130605, end: 20130619
  38. TRIFLUCAN [Concomitant]
     Dosage: 1 DF
     Dates: start: 20130605, end: 20130618
  39. ZOVIRAX [Concomitant]
     Dosage: 3 DF
     Dates: start: 20130605, end: 20130709
  40. METHOTREXATE MYLAN [Concomitant]
     Dosage: 1 DF
     Dates: start: 20130605, end: 20130619
  41. ELVORINE [Concomitant]
     Dosage: 1 DF
     Dates: start: 20130605, end: 20130619
  42. SANDIMMUN [Concomitant]
     Dosage: 1 DF
     Dates: start: 20130614, end: 20130708
  43. MOPRAL [Concomitant]
     Dosage: 1 DF
     Dates: start: 20130605, end: 20130618
  44. OGASTORO [Concomitant]
     Dosage: 1 DF
     Dates: start: 20130619, end: 20130708
  45. GELOX [Concomitant]
     Dosage: 1 PACKED TID
     Dates: start: 20130605, end: 20130708
  46. SMECTA [Concomitant]
     Dosage: 6 PACKETS DAILY
     Dates: start: 20130620, end: 20130708
  47. LUTERAN [Concomitant]
     Dosage: 1 DF
     Dates: start: 20130605, end: 20130708
  48. LEXOMIL [Concomitant]
     Dosage: 0.5 DF
     Dates: start: 20130605, end: 20130708
  49. NOCTAMIDE [Concomitant]
     Dosage: 1 DF
     Dates: start: 20130605, end: 20130708
  50. ZOPHREN [Concomitant]
     Dosage: 2 AMPOULES DAILY
     Dates: start: 20130605, end: 20130708
  51. PRIMPERAN [Concomitant]
     Dosage: 6 AMPOULES DAILY
     Dates: start: 20130620, end: 20130709
  52. ACUPAN [Concomitant]
     Dosage: 6 AMPOULES DAILY ON REQUEST
     Dates: start: 20130620, end: 20130709
  53. TIORFAN [Concomitant]
     Dates: start: 20130622, end: 20130708
  54. LEVOCARNIL [Concomitant]
     Dosage: 3 DF
     Dates: start: 20130709, end: 20130714

REACTIONS (1)
  - Toxic epidermal necrolysis [Fatal]
